FAERS Safety Report 5444859-8 (Version None)
Quarter: 2007Q3

REPORT INFORMATION
  Report Type: 
  Country: None (occurrence: None)
  Receive Date: 20070824
  Receipt Date: 20070813
  Transmission Date: 20080115
  Serious: Yes (Other)
  Sender: FDA-Public Use
  Company Number: CHNY2007DE02894

PATIENT
  Sex: Female

DRUGS (2)
  1. PENCICLOVIR [Suspect]
     Indication: ORAL HERPES
     Dosage: TOPICAL
     Route: 061
     Dates: start: 20070801
  2. LEVOTHYROXINE SODIUM [Concomitant]

REACTIONS (4)
  - DRUG EFFECT DECREASED [None]
  - HERPES SIMPLEX [None]
  - IMPAIRED HEALING [None]
  - PATHOGEN RESISTANCE [None]
